FAERS Safety Report 8836601 (Version 2)
Quarter: 2013Q1

REPORT INFORMATION
  Report Type: Spontaneous
  Country: JP (occurrence: None)
  Receive Date: 20121009
  Receipt Date: 20130212
  Transmission Date: 20140127
  Serious: Yes (Hospitalization)
  Sender: FDA-Public Use
  Company Number: TPA2012A07711

PATIENT
  Age: 60 Year
  Sex: Male

DRUGS (4)
  1. FEBURIC (FEBUXOSTAT) [Suspect]
     Indication: GOUT
     Route: 048
     Dates: start: 20120508, end: 20120509
  2. LOXONIN [Concomitant]
  3. COLCHICINE (COLCHICINE) [Concomitant]
  4. REBAMIPIDE (REBAMIPIDE) [Concomitant]

REACTIONS (1)
  - Lung neoplasm malignant [None]
